FAERS Safety Report 24578278 (Version 2)
Quarter: 2024Q4

REPORT INFORMATION
  Report Type: Spontaneous
  Country: US (occurrence: US)
  Receive Date: 20241105
  Receipt Date: 20241217
  Transmission Date: 20250114
  Serious: No
  Sender: MERCK
  Company Number: US-009507513-2411USA000484

PATIENT
  Sex: Female
  Weight: 130.2 kg

DRUGS (25)
  1. WINREVAIR [Suspect]
     Active Substance: SOTATERCEPT-CSRK
     Dosage: UNK
  2. REMODULIN [Suspect]
     Active Substance: TREPROSTINIL
     Indication: Pulmonary arterial hypertension
     Dosage: 0.060 ?G/KG (SELF-FILL WITH 3 ML PER CASSETTE; RATE 45 MCL PER HOUR), CONTINUING
     Route: 058
     Dates: start: 20230424
  3. VITAMIN C [Concomitant]
     Active Substance: ASCORBIC ACID
  4. ROSUVASTATIN CALCIUM [Concomitant]
     Active Substance: ROSUVASTATIN CALCIUM
  5. PROBIOTICS NOS [Concomitant]
     Active Substance: PROBIOTICS NOS
  6. TADALAFIL [Concomitant]
     Active Substance: TADALAFIL
  7. RISPERIDONE [Concomitant]
     Active Substance: RISPERIDONE
  8. FLONASE [Concomitant]
     Active Substance: FLUTICASONE PROPIONATE
     Indication: Hypersensitivity
  9. LOSARTAN POTASSIUM [Concomitant]
     Active Substance: LOSARTAN POTASSIUM
  10. ATIVAN [Concomitant]
     Active Substance: LORAZEPAM
  11. OPSUMIT [Concomitant]
     Active Substance: MACITENTAN
  12. BIOTIN [Concomitant]
     Active Substance: BIOTIN
  13. LAMICTAL [Concomitant]
     Active Substance: LAMOTRIGINE
  14. PROAIR HFA [Concomitant]
     Active Substance: ALBUTEROL SULFATE
  15. SPIRONOLACTONE [Concomitant]
     Active Substance: SPIRONOLACTONE
  16. ZINC [Concomitant]
     Active Substance: ZINC
  17. D 400 [Concomitant]
  18. OXYGEN [Concomitant]
     Active Substance: OXYGEN
  19. MAGNESIUM [Concomitant]
     Active Substance: MAGNESIUM
  20. TORSEMIDE [Concomitant]
     Active Substance: TORSEMIDE
  21. CEFUROXIME [Concomitant]
     Active Substance: CEFUROXIME
  22. METFORMIN HYDROCHLORIDE [Concomitant]
     Active Substance: METFORMIN HYDROCHLORIDE
  23. LEXAPRO [Concomitant]
     Active Substance: ESCITALOPRAM OXALATE
  24. FLOVENT [Concomitant]
     Active Substance: FLUTICASONE PROPIONATE
  25. PROBIOTICS NOS [Concomitant]
     Active Substance: PROBIOTICS NOS

REACTIONS (3)
  - Weight increased [Unknown]
  - Gingival bleeding [Unknown]
  - Menstruation delayed [Unknown]
